FAERS Safety Report 11073272 (Version 1)
Quarter: 2015Q2

REPORT INFORMATION
  Report Type: Spontaneous
  Country: US (occurrence: US)
  Receive Date: 20150428
  Receipt Date: 20150428
  Transmission Date: 20150821
  Serious: Yes (Hospitalization, Other)
  Sender: FDA-Public Use
  Company Number: US-ABBVIE-15P-163-1382033-00

PATIENT
  Sex: Male

DRUGS (2)
  1. ANDROGEL [Suspect]
     Active Substance: TESTOSTERONE
     Indication: BLOOD TESTOSTERONE DECREASED
     Route: 065
  2. ANDROGEL [Suspect]
     Active Substance: TESTOSTERONE
     Route: 065

REACTIONS (11)
  - Respiratory disorder [Unknown]
  - Economic problem [Unknown]
  - Pain [Unknown]
  - Shoulder operation [Unknown]
  - Anhedonia [Unknown]
  - Anxiety [Unknown]
  - Deep vein thrombosis [Unknown]
  - Fear [Unknown]
  - Social problem [Unknown]
  - Impaired work ability [Unknown]
  - Injury [Unknown]

NARRATIVE: CASE EVENT DATE: 2014
